FAERS Safety Report 14360285 (Version 6)
Quarter: 2018Q2

REPORT INFORMATION
  Report Type: Spontaneous
  Country: CZ (occurrence: CZ)
  Receive Date: 20180106
  Receipt Date: 20180510
  Transmission Date: 20180711
  Serious: Yes (Life-Threatening, Hospitalization, Other)
  Sender: FDA-Public Use
  Company Number: CZ-AUROBINDO-AUR-APL-2018-000568

PATIENT
  Age: 51 Year
  Sex: Female

DRUGS (72)
  1. TRAMADOL. [Interacting]
     Active Substance: TRAMADOL
     Indication: ANALGESIC THERAPY
     Dosage: ()
  2. SUFENTANIL [Interacting]
     Active Substance: SUFENTANIL
     Dosage: UNK ()
     Route: 065
  3. CODEINE [Interacting]
     Active Substance: CODEINE
     Indication: PAIN
     Dosage: UNK ()
     Route: 065
  4. CODEINE [Interacting]
     Active Substance: CODEINE
     Dosage: ()
  5. LEVOFLOXACIN. [Interacting]
     Active Substance: LEVOFLOXACIN
     Indication: ANTIBIOTIC THERAPY
     Dosage: UNK
     Route: 065
  6. PAROXETINE. [Interacting]
     Active Substance: PAROXETINE
     Indication: PRODUCT USED FOR UNKNOWN INDICATION
     Dosage: 60 MG, QD
     Route: 065
  7. TRAMADOL. [Interacting]
     Active Substance: TRAMADOL
     Dosage: ()
  8. SUFENTANIL [Interacting]
     Active Substance: SUFENTANIL
     Dosage: ()
  9. TRAMADOL. [Interacting]
     Active Substance: TRAMADOL
     Indication: PRODUCT USED FOR UNKNOWN INDICATION
     Dosage: ()
  10. TRAMADOL. [Interacting]
     Active Substance: TRAMADOL
     Dosage: 50 MG, UNK
     Route: 065
  11. PARACETAMOL [Interacting]
     Active Substance: ACETAMINOPHEN
     Indication: PYREXIA
     Dosage: 4 GRAMS A DAY ()
     Route: 065
  12. TRAZODONE [Interacting]
     Active Substance: TRAZODONE HYDROCHLORIDE
     Dosage: 300 MG, QD
     Route: 065
  13. SUFENTANIL [Interacting]
     Active Substance: SUFENTANIL
     Dosage: ()
  14. CODEINE [Interacting]
     Active Substance: CODEINE
     Indication: PRODUCT USED FOR UNKNOWN INDICATION
     Dosage: ()
  15. LEVOFLOXACIN. [Interacting]
     Active Substance: LEVOFLOXACIN
     Dosage: ()
  16. TRAMADOL HYDROCHLORID/PARACETAMOL [Interacting]
     Active Substance: ACETAMINOPHEN\TRAMADOL HYDROCHLORIDE
     Indication: PRODUCT USED FOR UNKNOWN INDICATION
     Dosage: UNK ()
     Route: 065
  17. BROMAZEPAM [Concomitant]
     Active Substance: BROMAZEPAM
     Indication: PRODUCT USED FOR UNKNOWN INDICATION
     Dosage: 2 MG, DAILY
     Route: 065
  18. MIDAZOLAM [Concomitant]
     Active Substance: MIDAZOLAM HYDROCHLORIDE
     Indication: MYOCLONUS
     Dosage: ()
  19. MIDAZOLAM [Concomitant]
     Active Substance: MIDAZOLAM HYDROCHLORIDE
     Indication: SEDATION
     Dosage: 15 MG, 1HR
     Route: 065
  20. CHLORPROTHIXEN                     /00012102/ [Concomitant]
     Active Substance: CHLORPROTHIXENE HYDROCHLORIDE
     Indication: PRODUCT USED FOR UNKNOWN INDICATION
     Dosage: 50 MG, DAILY
     Route: 065
  21. TRAZODONE [Interacting]
     Active Substance: TRAZODONE HYDROCHLORIDE
  22. METOCLOPRAMIDE. [Interacting]
     Active Substance: METOCLOPRAMIDE
     Dosage: ()
  23. METOCLOPRAMIDE. [Interacting]
     Active Substance: METOCLOPRAMIDE
     Dosage: ()
  24. LEVOFLOXACIN. [Interacting]
     Active Substance: LEVOFLOXACIN
     Dosage: ()
  25. IVABRADINE [Concomitant]
     Active Substance: IVABRADINE
  26. BROMAZEPAM [Concomitant]
     Active Substance: BROMAZEPAM
  27. BROMAZEPAM [Concomitant]
     Active Substance: BROMAZEPAM
     Dosage: 2 MG, QD
     Route: 065
  28. MELOXICAM. [Concomitant]
     Active Substance: MELOXICAM
     Dosage: ()
  29. PAROXETINE. [Interacting]
     Active Substance: PAROXETINE
  30. TRAMADOL. [Interacting]
     Active Substance: TRAMADOL
     Dosage: ()
  31. TRAZODONE [Interacting]
     Active Substance: TRAZODONE HYDROCHLORIDE
     Indication: PRODUCT USED FOR UNKNOWN INDICATION
     Dosage: 300 MG, DAILY
     Route: 065
  32. SUFENTANIL [Interacting]
     Active Substance: SUFENTANIL
     Dosage: ()
  33. IVABRADINE [Concomitant]
     Active Substance: IVABRADINE
  34. BROMAZEPAM [Concomitant]
     Active Substance: BROMAZEPAM
     Dosage: 2 MG, QD
     Route: 065
  35. INDOMETHACIN                       /00003801/ [Concomitant]
     Active Substance: INDOMETHACIN
     Indication: ANALGESIC THERAPY
     Dosage: UNK
     Route: 065
  36. MELOXICAM. [Concomitant]
     Active Substance: MELOXICAM
     Indication: ANALGESIC THERAPY
     Dosage: UNK
     Route: 065
  37. MELOXICAM. [Concomitant]
     Active Substance: MELOXICAM
     Dosage: ()
  38. TRAMADOL. [Interacting]
     Active Substance: TRAMADOL
     Dosage: 50 MG, UNK
     Route: 065
  39. TRAZODONE [Interacting]
     Active Substance: TRAZODONE HYDROCHLORIDE
     Indication: PRODUCT USED FOR UNKNOWN INDICATION
  40. METOCLOPRAMIDE. [Interacting]
     Active Substance: METOCLOPRAMIDE
     Indication: PRODUCT USED FOR UNKNOWN INDICATION
     Dosage: ()
  41. SUFENTANIL [Interacting]
     Active Substance: SUFENTANIL
     Indication: SEDATION
     Dosage: UNK
     Route: 065
  42. CODEINE [Interacting]
     Active Substance: CODEINE
     Indication: PRODUCT USED FOR UNKNOWN INDICATION
     Dosage: UNK
     Route: 065
  43. LEVOFLOXACIN. [Interacting]
     Active Substance: LEVOFLOXACIN
     Dosage: UNK ()
     Route: 065
  44. MELOXICAM. [Concomitant]
     Active Substance: MELOXICAM
     Dosage: ()
  45. MELOXICAM. [Concomitant]
     Active Substance: MELOXICAM
     Dosage: ()
  46. BUDESONIDE 160?G, FORMOTEROL 4.5?G [Concomitant]
     Indication: ASTHMA
     Dosage: ()
     Route: 055
  47. PAROXETINE. [Interacting]
     Active Substance: PAROXETINE
     Dosage: 60 MG, QD
     Route: 065
  48. PAROXETINE. [Interacting]
     Active Substance: PAROXETINE
  49. TRAMADOL. [Interacting]
     Active Substance: TRAMADOL
     Indication: ANALGESIC THERAPY
     Dosage: UNK
     Route: 065
  50. METOCLOPRAMIDE. [Interacting]
     Active Substance: METOCLOPRAMIDE
     Dosage: ()
  51. SUFENTANIL [Interacting]
     Active Substance: SUFENTANIL
     Dosage: ()
     Route: 065
  52. CODEINE [Interacting]
     Active Substance: CODEINE
     Dosage: ()
  53. LEVOFLOXACIN. [Interacting]
     Active Substance: LEVOFLOXACIN
     Dosage: ()
  54. LEVOFLOXACIN. [Interacting]
     Active Substance: LEVOFLOXACIN
     Dosage: ()
  55. LEVOFLOXACIN. [Interacting]
     Active Substance: LEVOFLOXACIN
     Dosage: ()
  56. IVABRADINE [Concomitant]
     Active Substance: IVABRADINE
     Indication: SINUS TACHYCARDIA
     Dosage: 10 MG, DAILY
     Route: 065
  57. IVABRADINE [Concomitant]
     Active Substance: IVABRADINE
     Dosage: 10 MG, QD
     Route: 065
  58. BROMAZEPAM [Concomitant]
     Active Substance: BROMAZEPAM
     Indication: PRODUCT USED FOR UNKNOWN INDICATION
  59. MELOXICAM. [Concomitant]
     Active Substance: MELOXICAM
     Dosage: ()
  60. PAROXETINE. [Suspect]
     Active Substance: PAROXETINE
     Indication: PRODUCT USED FOR UNKNOWN INDICATION
     Dosage: 60 MILLIGRAM, DAILY
     Route: 065
  61. TRAMADOL. [Interacting]
     Active Substance: TRAMADOL
     Dosage: ()
  62. CODEINEFOSFAAT [Interacting]
     Active Substance: CODEINE PHOSPHATE
     Indication: PRODUCT USED FOR UNKNOWN INDICATION
     Dosage: UNK
     Route: 065
  63. TRAZODONE [Interacting]
     Active Substance: TRAZODONE HYDROCHLORIDE
     Dosage: 300 MG, QD
     Route: 065
  64. TRAZODONE [Interacting]
     Active Substance: TRAZODONE HYDROCHLORIDE
  65. METOCLOPRAMIDE. [Interacting]
     Active Substance: METOCLOPRAMIDE
     Indication: PRODUCT USED FOR UNKNOWN INDICATION
     Dosage: UNK
     Route: 065
  66. METOCLOPRAMIDE. [Interacting]
     Active Substance: METOCLOPRAMIDE
     Dosage: UNK ()
     Route: 065
  67. SUFENTANIL [Interacting]
     Active Substance: SUFENTANIL
     Dosage: ()
  68. CODEINE [Interacting]
     Active Substance: CODEINE
     Dosage: ()
     Route: 065
  69. IVABRADINE [Concomitant]
     Active Substance: IVABRADINE
  70. IVABRADINE [Concomitant]
     Active Substance: IVABRADINE
     Dosage: 10 MG, QD
     Route: 065
  71. BROMAZEPAM [Concomitant]
     Active Substance: BROMAZEPAM
  72. MIDAZOLAM [Concomitant]
     Active Substance: MIDAZOLAM HYDROCHLORIDE
     Indication: PRODUCT USED FOR UNKNOWN INDICATION
     Dosage: UNK
     Route: 065

REACTIONS (29)
  - Brain oedema [Unknown]
  - Tachycardia [Unknown]
  - Oliguria [Unknown]
  - Myoclonus [Unknown]
  - Metabolic acidosis [Unknown]
  - Circulatory collapse [Unknown]
  - Muscle spasms [Unknown]
  - Drug interaction [Unknown]
  - Tremor [Unknown]
  - Drug ineffective [Not Recovered/Not Resolved]
  - Agitation [Unknown]
  - Hyperhidrosis [Unknown]
  - Candida pneumonia [Unknown]
  - Pneumonia fungal [Unknown]
  - Arthralgia [Unknown]
  - Apallic syndrome [Unknown]
  - Bronchopulmonary aspergillosis [Unknown]
  - Restlessness [Unknown]
  - Overdose [Not Recovered/Not Resolved]
  - Dyspnoea [Unknown]
  - Leukocytosis [Unknown]
  - Hypertension [Unknown]
  - Mydriasis [Unknown]
  - Delirium [Unknown]
  - Serotonin syndrome [Unknown]
  - Depressed level of consciousness [Unknown]
  - Myoglobin blood increased [Unknown]
  - Sinus tachycardia [Unknown]
  - Pyrexia [Unknown]
